FAERS Safety Report 23731683 (Version 1)
Quarter: 2024Q2

REPORT INFORMATION
  Report Type: Spontaneous
  Country: US (occurrence: None)
  Receive Date: 20240410
  Receipt Date: 20240410
  Transmission Date: 20240715
  Serious: No
  Sender: FDA-Public Use
  Company Number: None

PATIENT
  Sex: Female

DRUGS (2)
  1. MENOPUR [Suspect]
     Active Substance: FOLLITROPIN\LUTEINIZING HORMONE
     Indication: Infertility tests
     Dosage: FREQ: INJECT 150 UNITS UNDER THE SKIN (SUBCUTANEOUS INJECTION) DAILY ?
     Route: 058
     Dates: start: 20240404
  2. GANIRELIX ACETATE [Concomitant]
     Active Substance: GANIRELIX ACETATE

REACTIONS (1)
  - Breast cancer [None]
